FAERS Safety Report 4999062-2 (Version None)
Quarter: 2006Q2

REPORT INFORMATION
  Report Type: 
  Country: None (occurrence: None)
  Receive Date: 20060509
  Receipt Date: 20060419
  Transmission Date: 20061013
  Serious: Yes (Hospitalization)
  Sender: FDA-Public Use
  Company Number: US200604003376

PATIENT
  Age: 86 Year
  Sex: Female

DRUGS (5)
  1. FORTEO [Suspect]
     Indication: OSTEOPOROSIS
     Dates: start: 20050801, end: 20060401
  2. FORTEO PEN (FORTEO PEN) PEN, DISPOSABLE [Concomitant]
  3. NORVASC [Concomitant]
  4. HYDROCHLOROTHIAZIDE [Concomitant]
  5. ATENOLOL [Concomitant]

REACTIONS (1)
  - PULMONARY EMBOLISM [None]
